FAERS Safety Report 19180473 (Version 2)
Quarter: 2021Q2

REPORT INFORMATION
  Report Type: Spontaneous
  Country: AU (occurrence: AU)
  Receive Date: 20210426
  Receipt Date: 20210607
  Transmission Date: 20210717
  Serious: Yes (Other)
  Sender: FDA-Public Use
  Company Number: AU-MYLANLABS-2021M1023721

PATIENT
  Age: 56 Year
  Sex: Male

DRUGS (1)
  1. EZOVIR [Suspect]
     Active Substance: FAMCICLOVIR
     Indication: ORAL HERPES
     Dosage: UNK

REACTIONS (6)
  - Scab [Unknown]
  - Drug ineffective [Unknown]
  - Oral herpes [Unknown]
  - Heart rate increased [Unknown]
  - Discomfort [Unknown]
  - Blood pressure increased [Unknown]
